FAERS Safety Report 19071635 (Version 1)
Quarter: 2021Q1

REPORT INFORMATION
  Report Type: Spontaneous
  Country: CN (occurrence: CN)
  Receive Date: 20210330
  Receipt Date: 20210330
  Transmission Date: 20210420
  Serious: Yes (Other)
  Sender: FDA-Public Use
  Company Number: CN-BAXTER-2021BAX005761

PATIENT
  Age: 24 Year
  Sex: Female
  Weight: 51 kg

DRUGS (6)
  1. DEXAMETHASONE. [Suspect]
     Active Substance: DEXAMETHASONE
     Indication: RASH ERYTHEMATOUS
     Route: 030
     Dates: start: 20210304
  2. 0.9% SODIUM CHLORIDE INJECTION [Suspect]
     Active Substance: SODIUM CHLORIDE
     Indication: MEDICATION DILUTION
     Route: 041
     Dates: start: 20210304, end: 20210304
  3. METRONIDAZOLE AND SODIUM CHLORIDE INJECTION [Suspect]
     Active Substance: METRONIDAZOLE\SODIUM CHLORIDE
     Indication: PELVIC INFLAMMATORY DISEASE
     Dosage: 0.5 GRAMS
     Route: 041
     Dates: start: 20210304, end: 20210304
  4. CHLORPHENAMINE MALEATE [Suspect]
     Active Substance: CHLORPHENIRAMINE MALEATE
     Indication: RASH PRURITIC
  5. CHLORPHENAMINE MALEATE [Suspect]
     Active Substance: CHLORPHENIRAMINE MALEATE
     Indication: RASH ERYTHEMATOUS
     Route: 065
     Dates: start: 20210304
  6. DEXAMETHASONE. [Suspect]
     Active Substance: DEXAMETHASONE
     Indication: RASH PRURITIC

REACTIONS (6)
  - Palpitations [Recovering/Resolving]
  - Dizziness [Recovering/Resolving]
  - Chest discomfort [Recovered/Resolved]
  - Rash erythematous [Recovering/Resolving]
  - Rash pruritic [Recovering/Resolving]
  - Hypoaesthesia [Recovering/Resolving]

NARRATIVE: CASE EVENT DATE: 20210304
